FAERS Safety Report 9779910 (Version 1)
Quarter: 2013Q4

REPORT INFORMATION
  Report Type: Spontaneous
  Country: MY (occurrence: MY)
  Receive Date: 20131223
  Receipt Date: 20131223
  Transmission Date: 20140711
  Serious: Yes (Hospitalization, Other)
  Sender: FDA-Public Use
  Company Number: MY-PFIZER INC-2013365437

PATIENT
  Age: 41 Year
  Sex: Female

DRUGS (3)
  1. LYRICA [Suspect]
     Indication: NEURALGIA
     Dosage: 25 MG, 3X/DAY
     Route: 048
     Dates: start: 201312, end: 20131213
  2. TRAMADOL [Concomitant]
  3. METHYCOBAL [Concomitant]

REACTIONS (8)
  - Drug hypersensitivity [Unknown]
  - Rash [Recovering/Resolving]
  - Pyrexia [Recovering/Resolving]
  - Eyelid oedema [Unknown]
  - Dyspnoea [Unknown]
  - Syncope [Unknown]
  - Palpitations [Unknown]
  - Dizziness [Unknown]
